FAERS Safety Report 5615667-X (Version None)
Quarter: 2008Q1

REPORT INFORMATION
  Report Type: 
  Country: None (occurrence: None)
  Receive Date: 20080206
  Receipt Date: 20080130
  Transmission Date: 20080703
  Serious: Yes (Hospitalization)
  Sender: FDA-Public Use
  Company Number: JP-MERCK-0801USA03733

PATIENT
  Age: 85 Year
  Sex: Female
  Weight: 47 kg

DRUGS (8)
  1. HYZAAR [Suspect]
     Indication: HYPERTENSION
     Route: 048
     Dates: start: 20071010, end: 20071017
  2. NORVASC [Concomitant]
     Indication: HYPERTENSION
     Route: 048
     Dates: start: 20070928, end: 20071017
  3. LORAZEPAM [Concomitant]
     Route: 048
     Dates: start: 20070307, end: 20071017
  4. [THERAPY UNSPECIFIED] [Suspect]
     Route: 048
     Dates: start: 20070829, end: 20071017
  5. ETIZOLAM [Concomitant]
     Route: 048
     Dates: start: 20060329, end: 20071017
  6. BIPERIDEN HYDROCHLORIDE [Concomitant]
     Route: 048
     Dates: start: 20070101, end: 20071017
  7. MELOXICAM [Concomitant]
     Route: 048
     Dates: start: 20070829, end: 20071017
  8. IFENPRODIL TARTRATE [Concomitant]
     Route: 048
     Dates: start: 20070914, end: 20071017

REACTIONS (2)
  - HYPOKALAEMIA [None]
  - PARALYSIS [None]
